FAERS Safety Report 20515180 (Version 1)
Quarter: 2022Q1

REPORT INFORMATION
  Report Type: Spontaneous
  Country: US (occurrence: US)
  Receive Date: 20220224
  Receipt Date: 20220224
  Transmission Date: 20220423
  Serious: Yes (Hospitalization)
  Sender: FDA-Public Use
  Company Number: US-ELI_LILLY_AND_COMPANY-US202202008629

PATIENT
  Age: 75 Year
  Sex: Male
  Weight: 71.7 kg

DRUGS (2)
  1. ETESEVIMAB [Suspect]
     Active Substance: ETESEVIMAB
     Indication: COVID-19
     Dosage: 1400 MG, SINGLE
     Route: 041
     Dates: start: 20211023, end: 20211023
  2. BAMLANIVIMAB [Suspect]
     Active Substance: BAMLANIVIMAB
     Indication: COVID-19
     Dosage: 700 MG, SINGLE
     Route: 041
     Dates: start: 20211023, end: 20211023

REACTIONS (6)
  - COVID-19 pneumonia [Recovered/Resolved]
  - Fibrin D dimer increased [Recovered/Resolved]
  - Troponin increased [Recovered/Resolved]
  - Hypokalaemia [Recovered/Resolved]
  - Pulmonary embolism [Recovered/Resolved]
  - Inappropriate schedule of product administration [Unknown]

NARRATIVE: CASE EVENT DATE: 20211030
